FAERS Safety Report 20148838 (Version 1)
Quarter: 2021Q4

REPORT INFORMATION
  Report Type: Report from Study
  Country: EG (occurrence: EG)
  Receive Date: 20211204
  Receipt Date: 20211204
  Transmission Date: 20220303
  Serious: Yes (Other)
  Sender: FDA-Public Use
  Company Number: EG-NOVARTISPH-NVSC2021EG272981

PATIENT
  Age: 66 Year
  Sex: Male

DRUGS (1)
  1. ENTRESTO [Suspect]
     Active Substance: SACUBITRIL\VALSARTAN
     Indication: Cardiac failure
     Dosage: 1 DOSAGE FORM, BID
     Route: 048
     Dates: start: 20200101, end: 202109

REACTIONS (7)
  - Dyspnoea [Recovering/Resolving]
  - Pericardial effusion [Recovering/Resolving]
  - Ascites [Recovering/Resolving]
  - Gout [Recovered/Resolved]
  - Blood creatinine increased [Recovered/Resolved]
  - Oedema peripheral [Recovering/Resolving]
  - Fatigue [Recovering/Resolving]

NARRATIVE: CASE EVENT DATE: 20210601
